FAERS Safety Report 15451277 (Version 2)
Quarter: 2018Q4

REPORT INFORMATION
  Report Type: Report from Study
  Country: IL (occurrence: IL)
  Receive Date: 20181001
  Receipt Date: 20181210
  Transmission Date: 20190204
  Serious: Yes (Hospitalization)
  Sender: FDA-Public Use
  Company Number: PHHY2018IL022823

PATIENT
  Sex: Male

DRUGS (3)
  1. COSENTYX [Suspect]
     Active Substance: SECUKINUMAB
     Indication: PSORIASIS
     Dosage: 300 MG, QMO
     Route: 058
     Dates: start: 20170905
  2. ISONIAZID. [Concomitant]
     Active Substance: ISONIAZID
     Indication: TUBERCULOSIS
     Dosage: UNK UNK, QW
     Route: 065
  3. ISONIAZID. [Concomitant]
     Active Substance: ISONIAZID
     Dosage: UNK UNK, QMO
     Route: 065

REACTIONS (4)
  - Alanine aminotransferase increased [Recovering/Resolving]
  - Fatigue [Not Recovered/Not Resolved]
  - Pneumonia [Recovered/Resolved]
  - Diarrhoea [Not Recovered/Not Resolved]
